FAERS Safety Report 6704615-7 (Version None)
Quarter: 2010Q2

REPORT INFORMATION
  Report Type: 
  Country: None (occurrence: None)
  Receive Date: 20100430
  Receipt Date: 20100420
  Transmission Date: 20101027
  Serious: Yes (Death)
  Sender: FDA-Public Use
  Company Number: US-JNJFOC-20091009216

PATIENT
  Sex: Male
  Weight: 45.36 kg

DRUGS (2)
  1. CONCERTA [Suspect]
     Indication: ATTENTION DEFICIT/HYPERACTIVITY DISORDER
     Route: 048
  2. RITALIN [Suspect]
     Indication: ATTENTION DEFICIT/HYPERACTIVITY DISORDER
     Route: 048

REACTIONS (13)
  - CAFE AU LAIT SPOTS [None]
  - CARDIAC ARREST [None]
  - CYANOSIS [None]
  - DISCOMFORT [None]
  - DRUG TOXICITY [None]
  - EYE MOVEMENT DISORDER [None]
  - FATIGUE [None]
  - MALAISE [None]
  - NAUSEA [None]
  - PULMONARY OEDEMA [None]
  - RESPIRATORY ARREST [None]
  - UNRESPONSIVE TO STIMULI [None]
  - VOMITING [None]
